FAERS Safety Report 22353345 (Version 6)
Quarter: 2025Q3

REPORT INFORMATION
  Report Type: Report from Study
  Country: CA (occurrence: CA)
  Receive Date: 20230523
  Receipt Date: 20250819
  Transmission Date: 20251020
  Serious: Yes (Hospitalization, Other)
  Sender: TAKEDA
  Company Number: CA-TAKEDA-2022TUS002606

PATIENT
  Sex: Female
  Weight: 61 kg

DRUGS (3)
  1. VEDOLIZUMAB [Suspect]
     Active Substance: VEDOLIZUMAB
     Indication: Crohn^s disease
  2. VEDOLIZUMAB [Suspect]
     Active Substance: VEDOLIZUMAB
     Indication: Crohn^s disease
     Dosage: 108 MILLIGRAM, Q2WEEKS
     Dates: start: 20220401
  3. PREDNISONE [Concomitant]
     Active Substance: PREDNISONE

REACTIONS (11)
  - Kidney infection [Unknown]
  - Cystitis [Unknown]
  - Abdominal pain [Unknown]
  - Diarrhoea [Not Recovered/Not Resolved]
  - Abdominal pain upper [Unknown]
  - Skin exfoliation [Unknown]
  - Arthritis [Unknown]
  - Malaise [Unknown]
  - Arthralgia [Unknown]
  - Constipation [Unknown]
  - Urinary tract infection [Unknown]
